FAERS Safety Report 4932138-4 (Version None)
Quarter: 2006Q1

REPORT INFORMATION
  Report Type: 
  Country: None (occurrence: None)
  Receive Date: 20060303
  Receipt Date: 20060227
  Transmission Date: 20060701
  Serious: Yes (Death)
  Sender: FDA-Public Use
  Company Number: PHFR2006GB00964

PATIENT
  Age: 58 Year
  Sex: Male
  Weight: 90 kg

DRUGS (4)
  1. SIMVASTATIN [Concomitant]
     Indication: BLOOD CHOLESTEROL INCREASED
     Dosage: 10 MG, QD
     Route: 048
  2. ASPIRIN [Concomitant]
     Indication: THROMBOSIS PROPHYLAXIS
     Dosage: 75 MG, QD
     Route: 048
  3. SALBUTAMOL [Concomitant]
     Indication: ASTHMA
     Dosage: 2 PUFFS/ PRN
  4. CLOZAPINE [Suspect]
     Indication: SCHIZOPHRENIA
     Dosage: 650MG/DAY
     Route: 048
     Dates: end: 20060206

REACTIONS (4)
  - ACUTE MYOCARDIAL INFARCTION [None]
  - BLOOD CREATINE PHOSPHOKINASE INCREASED [None]
  - PULMONARY OEDEMA [None]
  - TROPONIN INCREASED [None]
